FAERS Safety Report 7474653-8 (Version None)
Quarter: 2011Q2

REPORT INFORMATION
  Report Type: 
  Country: None (occurrence: None)
  Receive Date: 20110504
  Receipt Date: 20110421
  Transmission Date: 20111010
  Serious: Yes (Hospitalization)
  Sender: FDA-Public Use
  Company Number: IDA-00536

PATIENT
  Age: 64 Year
  Sex: Female

DRUGS (6)
  1. TIAPRIDAL (TIAPRIDE) [Suspect]
     Indication: AGITATION
     Dosage: 5 GTT BID ORAL FORMULATION: UNKNOWN
     Dates: start: 20110310
  2. CALCIPARINE [Suspect]
     Indication: THROMBOSIS
     Dosage: DOSE TEXT: 5000 IU/0.2 ML TWICE A DAY SUBCUTANEOUS FORMULATION: UNKNOWN
     Dates: start: 20110303, end: 20110315
  3. PROPRANOLOL [Suspect]
     Indication: ARRHYTHMIA
     Dosage: 40 MG BID ORAL FORMULATION: TABLET
     Route: 048
     Dates: start: 20110312, end: 20110315
  4. SOLU-MEDROL [Suspect]
     Indication: INFLAMMATION
     Dosage: 60 MG DAILY
     Dates: start: 20110304
  5. ACUPAN [Concomitant]
  6. DEBRIDAT (TRIMEBUTINE MALEATE) [Concomitant]

REACTIONS (1)
  - THROMBOCYTOPENIA [None]
